FAERS Safety Report 7287642-3 (Version None)
Quarter: 2011Q1

REPORT INFORMATION
  Report Type: 
  Country: None (occurrence: None)
  Receive Date: 20110211
  Receipt Date: 20110131
  Transmission Date: 20110831
  Serious: Yes (Hospitalization)
  Sender: FDA-Public Use
  Company Number: FR-SANOFI-AVENTIS-2011SA006165

PATIENT
  Age: 47 Year
  Sex: Male

DRUGS (3)
  1. KETEK [Suspect]
     Indication: SUPERINFECTION
     Route: 048
     Dates: start: 20101201, end: 20101203
  2. SERETIDE DISKUS [Suspect]
     Indication: ASTHMA
     Route: 055
     Dates: start: 20101201, end: 20101203
  3. PREDNISOLONE [Suspect]
     Indication: SUPERINFECTION
     Route: 048
     Dates: start: 20101201, end: 20101203

REACTIONS (4)
  - HEAD INJURY [None]
  - LOSS OF CONSCIOUSNESS [None]
  - VISUAL IMPAIRMENT [None]
  - MALAISE [None]
